FAERS Safety Report 23621516 (Version 4)
Quarter: 2024Q2

REPORT INFORMATION
  Report Type: Spontaneous
  Country: US (occurrence: US)
  Receive Date: 20240312
  Receipt Date: 20240403
  Transmission Date: 20240716
  Serious: No
  Sender: FDA-Public Use
  Company Number: US-AMGEN-USASP2024048931

PATIENT
  Age: 51 Year
  Sex: Female
  Weight: 111.13 kg

DRUGS (5)
  1. NEULASTA [Suspect]
     Active Substance: PEGFILGRASTIM
     Indication: Prophylaxis
     Dosage: UNK
     Route: 065
     Dates: start: 20240123
  2. NEULASTA [Suspect]
     Active Substance: PEGFILGRASTIM
     Dosage: UNK
     Route: 065
  3. TAXOTERE [Concomitant]
     Active Substance: DOCETAXEL
     Dosage: UNK
     Route: 065
  4. CARBOPLATIN [Concomitant]
     Active Substance: CARBOPLATIN
     Dosage: UNK
     Route: 065
  5. HERCEPTIN [Concomitant]
     Active Substance: TRASTUZUMAB
     Dosage: UNK
     Route: 065

REACTIONS (1)
  - Intercepted product preparation error [Unknown]

NARRATIVE: CASE EVENT DATE: 20240307
